FAERS Safety Report 4337128-0 (Version None)
Quarter: 2004Q1

REPORT INFORMATION
  Report Type: 
  Country: None (occurrence: None)
  Receive Date: 20040329
  Receipt Date: 20040202
  Transmission Date: 20041129
  Serious: No
  Sender: FDA-Public Use
  Company Number: USA040258244

PATIENT
  Sex: Female

DRUGS (1)
  1. STRATTERA [Suspect]
     Dosage: 60 MG/DAY
     Dates: start: 20031101, end: 20040126

REACTIONS (4)
  - CRYING [None]
  - FOOD CRAVING [None]
  - HEADACHE [None]
  - HYPERSOMNIA [None]
